FAERS Safety Report 24326946 (Version 1)
Quarter: 2024Q3

REPORT INFORMATION
  Report Type: Spontaneous
  Country: ES (occurrence: ES)
  Receive Date: 20240917
  Receipt Date: 20240917
  Transmission Date: 20241017
  Serious: Yes (Hospitalization, Other)
  Sender: MYLAN
  Company Number: ES-MYLANLABS-2024M1082969

PATIENT
  Age: 24 Year
  Sex: Male

DRUGS (6)
  1. TACROLIMUS [Suspect]
     Active Substance: TACROLIMUS
     Indication: Immunosuppressant drug therapy
     Dosage: UNK
     Route: 065
  2. ANIDULAFUNGIN [Suspect]
     Active Substance: ANIDULAFUNGIN
     Indication: Systemic candida
     Dosage: UNK
     Route: 042
  3. CASPOFUNGIN [Suspect]
     Active Substance: CASPOFUNGIN
     Indication: Candida endophthalmitis
     Dosage: 100 ?G/0.1 ML; INJECTED IN THE RIGHT EYE
  4. CASPOFUNGIN [Suspect]
     Active Substance: CASPOFUNGIN
     Dosage: 100 ?G/0.1 ML; INJECTED IN BOTH EYES
  5. CASPOFUNGIN [Suspect]
     Active Substance: CASPOFUNGIN
     Dosage: TWO OTHER  100 ?G/0.1 ML CASPOFUNGIN INTRAVITREAL INJECTIONS IN EACH EYE (1 WEEK AND.....
  6. ISAVUCONAZOLE [Concomitant]
     Active Substance: ISAVUCONAZOLE
     Indication: Candida endophthalmitis
     Dosage: ENDOVENOUS
     Route: 065
     Dates: start: 20211119, end: 20220520

REACTIONS (6)
  - Systemic candida [Recovering/Resolving]
  - Candida endophthalmitis [Recovering/Resolving]
  - Leukopenia [Unknown]
  - Drug ineffective [Unknown]
  - Cataract subcapsular [Not Recovered/Not Resolved]
  - Off label use [Unknown]
